FAERS Safety Report 7861322-5 (Version None)
Quarter: 2011Q4

REPORT INFORMATION
  Report Type: 
  Country: None (occurrence: None)
  Receive Date: 20111027
  Receipt Date: 20111012
  Transmission Date: 20120403
  Serious: Yes (Disabling, Other)
  Sender: FDA-Public Use
  Company Number: DE-TEVA-305145GER

PATIENT
  Age: 56 Year
  Sex: Female
  Weight: 57 kg

DRUGS (7)
  1. IDARUBICIN HCL [Suspect]
     Indication: ACUTE MYELOID LEUKAEMIA
     Dates: start: 20110617, end: 20110619
  2. ETOPOSIDE [Suspect]
     Indication: ACUTE MYELOID LEUKAEMIA
     Dates: start: 20110617, end: 20110619
  3. GEMTUZUMAB OZOGAMICIN [Suspect]
     Indication: ACUTE MYELOID LEUKAEMIA
     Dates: start: 20110617, end: 20110617
  4. TRETINOIN [Suspect]
     Indication: ACUTE MYELOID LEUKAEMIA
     Dates: start: 20110622, end: 20110624
  5. PEGFILGRASTIM [Suspect]
     Indication: ACUTE MYELOID LEUKAEMIA
  6. TRETINOIN [Suspect]
     Dates: start: 20110625, end: 20110708
  7. CYTARABINE [Suspect]
     Indication: ACUTE MYELOID LEUKAEMIA
     Dates: start: 20110617, end: 20110623

REACTIONS (1)
  - PERONEAL NERVE PALSY [None]
